FAERS Safety Report 17543223 (Version 9)
Quarter: 2022Q3

REPORT INFORMATION
  Report Type: Report from Study
  Country: BR (occurrence: BR)
  Receive Date: 20200316
  Receipt Date: 20220908
  Transmission Date: 20221026
  Serious: Yes (Hospitalization)
  Sender: FDA-Public Use
  Company Number: BR-BIOGEN-2018BI00657665

PATIENT
  Age: 40 Year
  Sex: Female
  Weight: 92 kg

DRUGS (16)
  1. TECFIDERA [Suspect]
     Active Substance: DIMETHYL FUMARATE
     Indication: Multiple sclerosis
     Dosage: MAINTENANCE DOSE
     Route: 050
     Dates: start: 20171214, end: 20200415
  2. TECFIDERA [Suspect]
     Active Substance: DIMETHYL FUMARATE
     Dosage: MAINTENANCE DOSE
     Route: 050
     Dates: start: 20171214, end: 20200415
  3. TECFIDERA [Suspect]
     Active Substance: DIMETHYL FUMARATE
     Route: 050
     Dates: start: 2017, end: 201902
  4. TECFIDERA [Suspect]
     Active Substance: DIMETHYL FUMARATE
     Route: 050
     Dates: start: 2017, end: 2019
  5. TECFIDERA [Suspect]
     Active Substance: DIMETHYL FUMARATE
     Route: 050
     Dates: start: 20171220, end: 2019
  6. TECFIDERA [Suspect]
     Active Substance: DIMETHYL FUMARATE
     Dosage: MAINTENANCE DOSE
     Route: 050
  7. MORPHINE [Suspect]
     Active Substance: MORPHINE
     Indication: Gallbladder disorder
     Route: 050
  8. DIPYRONE [Suspect]
     Active Substance: DIPYRONE
     Indication: Gallbladder disorder
     Route: 050
  9. VITAMIN D [Concomitant]
     Active Substance: VITAMIN D NOS
     Indication: Product used for unknown indication
     Route: 050
  10. DICLIN [Concomitant]
     Indication: Product used for unknown indication
     Route: 050
  11. PROPRANOLOL HYDROCHLORIDE [Concomitant]
     Active Substance: PROPRANOLOL HYDROCHLORIDE
     Indication: Hypertension
     Route: 050
     Dates: start: 2012
  12. ATENSINE (Clonidine Hydrochloride) [Concomitant]
     Indication: Hypertension
     Route: 050
  13. DEXCHLORPHENIRAMINE MALEATE [Concomitant]
     Active Substance: DEXCHLORPHENIRAMINE MALEATE
     Indication: Flushing
     Route: 050
  14. ASPIRIN [Concomitant]
     Active Substance: ASPIRIN
     Indication: Flushing
     Route: 050
  15. ETHINYL ESTRADIOL\LEVONORGESTREL [Concomitant]
     Active Substance: ETHINYL ESTRADIOL\LEVONORGESTREL
     Indication: Product used for unknown indication
     Route: 050
     Dates: start: 2005, end: 202110
  16. ETHINYL ESTRADIOL\LEVONORGESTREL [Concomitant]
     Active Substance: ETHINYL ESTRADIOL\LEVONORGESTREL
     Indication: Contraception
     Dosage: (LEVONORGESTREL 0.25 MG AND  ETHINYLESTRADIO L 0.05 MG)
     Route: 050

REACTIONS (25)
  - Gallbladder disorder [Recovered/Resolved]
  - Multiple sclerosis relapse [Recovered/Resolved]
  - Dizziness [Not Recovered/Not Resolved]
  - Constipation [Not Recovered/Not Resolved]
  - Hyperhidrosis [Not Recovered/Not Resolved]
  - Malaise [Not Recovered/Not Resolved]
  - Treatment failure [Unknown]
  - Eye pruritus [Not Recovered/Not Resolved]
  - Asthenia [Unknown]
  - Joint dislocation [Recovered/Resolved]
  - Memory impairment [Not Recovered/Not Resolved]
  - Fall [Recovered/Resolved]
  - Multiple sclerosis [Not Recovered/Not Resolved]
  - Renal disorder [Recovered/Resolved]
  - Weight increased [Unknown]
  - Gastrooesophageal reflux disease [Recovered/Resolved]
  - Tinnitus [Not Recovered/Not Resolved]
  - Gastric disorder [Not Recovered/Not Resolved]
  - Liver disorder [Not Recovered/Not Resolved]
  - Pain [Not Recovered/Not Resolved]
  - Feeling hot [Not Recovered/Not Resolved]
  - Burning sensation [Not Recovered/Not Resolved]
  - Flushing [Recovered/Resolved]
  - Abdominal pain upper [Recovered/Resolved]
  - Nausea [Not Recovered/Not Resolved]

NARRATIVE: CASE EVENT DATE: 20171214
